FAERS Safety Report 7994221-9 (Version None)
Quarter: 2011Q4

REPORT INFORMATION
  Report Type: 
  Country: None (occurrence: None)
  Receive Date: 20111220
  Receipt Date: 20111208
  Transmission Date: 20120403
  Serious: Yes (Hospitalization, Disabling)
  Sender: FDA-Public Use
  Company Number: FR-JNJFOC-20090101308

PATIENT
  Age: 45 Year
  Sex: Male

DRUGS (8)
  1. METHOTREXATE [Concomitant]
     Indication: PSORIATIC ARTHROPATHY
  2. METHOTREXATE [Concomitant]
     Dates: end: 20020101
  3. REMICADE [Suspect]
     Route: 042
     Dates: start: 20041213
  4. REMICADE [Suspect]
     Route: 042
     Dates: start: 20031226, end: 20040301
  5. REMICADE [Suspect]
     Route: 042
     Dates: start: 20031123
  6. REMICADE [Suspect]
     Indication: PSORIATIC ARTHROPATHY
     Dosage: INFUSION DURATION WAS 1 HOUR INSTEAD OF THE USUAL 4 HOURS
     Route: 042
     Dates: start: 20041230
  7. REMICADE [Suspect]
     Route: 042
     Dates: start: 20031113
  8. ENBREL [Concomitant]
     Indication: PSORIATIC ARTHROPATHY
     Dates: start: 20040301, end: 20041101

REACTIONS (7)
  - POLYNEUROPATHY [None]
  - HYPERSENSITIVITY [None]
  - BALANCE DISORDER [None]
  - ARTHRITIS [None]
  - INFUSION RELATED REACTION [None]
  - PYREXIA [None]
  - DEMYELINATION [None]
